FAERS Safety Report 8443159-1 (Version None)
Quarter: 2012Q2

REPORT INFORMATION
  Report Type: 
  Country: None (occurrence: None)
  Receive Date: 20120615
  Receipt Date: 20120607
  Transmission Date: 20120825
  Serious: Yes (Death)
  Sender: FDA-Public Use
  Company Number: US-RB-040563-12

PATIENT
  Sex: Male

DRUGS (8)
  1. SUBOXONE [Suspect]
     Route: 060
     Dates: start: 20120313
  2. ATIVAN [Concomitant]
     Indication: MIGRAINE
     Dosage: UNIT DOSE UNKNOWN
     Route: 065
     Dates: start: 20120313
  3. HEROIN [Suspect]
     Indication: PRODUCT USED FOR UNKNOWN INDICATION
     Dosage: DOSING DETAILS UNKNOWN
     Route: 065
     Dates: end: 20120424
  4. TRAMADOL HCL [Suspect]
     Indication: PRODUCT USED FOR UNKNOWN INDICATION
     Dosage: DPSONG DETAILS UNKNOWN
     Route: 065
     Dates: end: 20120424
  5. SUBOXONE [Suspect]
     Route: 060
     Dates: start: 20111201, end: 20120312
  6. METHAMPHETAMINE HYDROCHLORIDE [Suspect]
     Indication: PRODUCT USED FOR UNKNOWN INDICATION
     Dosage: DOSING DETAILS UNKNOWN
     Route: 065
     Dates: end: 20120424
  7. BARBITURATES [Suspect]
     Indication: PRODUCT USED FOR UNKNOWN INDICATION
     Dosage: DOSING DETAILS UNKNOWN
     Route: 065
     Dates: end: 20120424
  8. SUBOXONE [Suspect]
     Indication: DRUG DEPENDENCE
     Route: 060
     Dates: start: 20110901, end: 20111201

REACTIONS (2)
  - OVERDOSE [None]
  - MIGRAINE [None]
